FAERS Safety Report 20245477 (Version 1)
Quarter: 2021Q4

REPORT INFORMATION
  Report Type: Spontaneous
  Country: CN (occurrence: CN)
  Receive Date: 20211229
  Receipt Date: 20211229
  Transmission Date: 20220304
  Serious: Yes (Other)
  Sender: FDA-Public Use
  Company Number: CN-PFIZER INC-202101815260

PATIENT
  Age: 22 Year
  Sex: Male
  Weight: 65 kg

DRUGS (3)
  1. SOLU-MEDROL [Suspect]
     Active Substance: METHYLPREDNISOLONE SODIUM SUCCINATE
     Indication: Pineal neoplasm
     Dosage: 40.000 MG, 2X/DAY
     Route: 041
     Dates: start: 20211016, end: 20211020
  2. SOLU-MEDROL [Suspect]
     Active Substance: METHYLPREDNISOLONE SODIUM SUCCINATE
     Dosage: 40.000 MG, 1X/DAY
     Route: 041
     Dates: start: 20211021, end: 20211025
  3. SODIUM CHLORIDE [Concomitant]
     Active Substance: SODIUM CHLORIDE
     Indication: Vehicle solution use
     Dosage: 100.000 ML, 2X/DAY
     Route: 041
     Dates: start: 20211016, end: 20211025

REACTIONS (2)
  - Transaminases increased [Recovered/Resolved]
  - Off label use [Unknown]

NARRATIVE: CASE EVENT DATE: 20211021
